FAERS Safety Report 21364217 (Version 1)
Quarter: 2022Q3

REPORT INFORMATION
  Report Type: Spontaneous
  Country: US (occurrence: US)
  Receive Date: 20220922
  Receipt Date: 20220922
  Transmission Date: 20221027
  Serious: No
  Sender: FDA-Public Use
  Company Number: US-PFIZER INC-202201169927

PATIENT
  Sex: Female

DRUGS (1)
  1. PAXLOVID [Suspect]
     Active Substance: NIRMATRELVIR\RITONAVIR
     Indication: COVID-19 treatment
     Dosage: UNK
     Dates: start: 2022, end: 2022

REACTIONS (7)
  - Drug ineffective [Unknown]
  - Disease recurrence [Unknown]
  - COVID-19 [Unknown]
  - Malaise [Unknown]
  - Eating disorder [Recovered/Resolved]
  - Dehydration [Unknown]
  - Frustration tolerance decreased [Unknown]
